FAERS Safety Report 7244311-3 (Version None)
Quarter: 2011Q1

REPORT INFORMATION
  Report Type: 
  Country: None (occurrence: None)
  Receive Date: 20110125
  Receipt Date: 20110115
  Transmission Date: 20110831
  Serious: Yes (Hospitalization)
  Sender: FDA-Public Use
  Company Number: US-SANOFI-AVENTIS-2011SA003553

PATIENT
  Age: 55 Year
  Sex: Female

DRUGS (3)
  1. ALL OTHER THERAPEUTIC PRODUCTS [Concomitant]
  2. LANTUS [Suspect]
     Dosage: DOSE:42 UNIT(S)
     Route: 058
     Dates: start: 20100101
  3. SOLOSTAR [Suspect]
     Dates: start: 20100101

REACTIONS (2)
  - FALL [None]
  - URINARY TRACT INFECTION [None]
